FAERS Safety Report 15331566 (Version 2)
Quarter: 2018Q4

REPORT INFORMATION
  Report Type: Spontaneous
  Country: US (occurrence: US)
  Receive Date: 20180829
  Receipt Date: 20181116
  Transmission Date: 20190204
  Serious: Yes (Hospitalization, Other)
  Sender: FDA-Public Use
  Company Number: US-BAYER-2018-158415

PATIENT
  Age: 29 Year
  Sex: Male
  Weight: 74.83 kg

DRUGS (5)
  1. FLAGYL [Suspect]
     Active Substance: METRONIDAZOLE\METRONIDAZOLE HYDROCHLORIDE
  2. FERROUS SULFATE. [Concomitant]
     Active Substance: FERROUS SULFATE
     Indication: ANAEMIA
  3. CIPRO [Suspect]
     Active Substance: CIPROFLOXACIN HYDROCHLORIDE
     Indication: PRODUCT USED FOR UNKNOWN INDICATION
     Dosage: UNK
     Route: 042
  4. HUMIRA [Suspect]
     Active Substance: ADALIMUMAB
     Indication: COLITIS ULCERATIVE
     Dosage: Q2WK
     Route: 058
     Dates: start: 201802, end: 2018
  5. BALSALAZINE DISODIUM [Concomitant]
     Indication: COLITIS ULCERATIVE
     Dosage: UNK

REACTIONS (11)
  - Gait disturbance [Unknown]
  - Oedema peripheral [Recovered/Resolved]
  - Deep vein thrombosis [Recovered/Resolved]
  - Haemoglobin decreased [Unknown]
  - Blood potassium decreased [None]
  - Pain [Unknown]
  - Vocal cord paralysis [Recovered/Resolved]
  - Scrotal oedema [Recovered/Resolved]
  - Pain in extremity [Recovered/Resolved]
  - Blood albumin decreased [Unknown]
  - Blood iron decreased [None]

NARRATIVE: CASE EVENT DATE: 2018
